FAERS Safety Report 15444667 (Version 1)
Quarter: 2018Q3

REPORT INFORMATION
  Report Type: Spontaneous
  Country: US (occurrence: US)
  Receive Date: 20180928
  Receipt Date: 20180928
  Transmission Date: 20181010
  Serious: No
  Sender: FDA-Public Use
  Company Number: US-SA-2018SA268697

PATIENT

DRUGS (4)
  1. LOVASTATIN. [Concomitant]
     Active Substance: LOVASTATIN
  2. PRAVASTATIN. [Concomitant]
     Active Substance: PRAVASTATIN
  3. PRALUENT [Suspect]
     Active Substance: ALIROCUMAB
  4. ALIROCUMAB PREFILLED PEN [Suspect]
     Active Substance: ALIROCUMAB

REACTIONS (2)
  - Low density lipoprotein increased [Unknown]
  - Therapeutic response decreased [Unknown]
